FAERS Safety Report 6687414-4 (Version None)
Quarter: 2010Q2

REPORT INFORMATION
  Report Type: 
  Country: None (occurrence: None)
  Receive Date: 20100415
  Receipt Date: 20100408
  Transmission Date: 20101027
  Serious: Yes (Death, Hospitalization)
  Sender: FDA-Public Use
  Company Number: JP-1181063

PATIENT
  Age: 62 Year
  Sex: Male

DRUGS (9)
  1. FLUORESCITE [Suspect]
     Indication: DIABETES MELLITUS
     Dosage: 500MG IV X1 [1 ML/SEC] INTRAVENOUS BOLUS
     Route: 040
     Dates: start: 20100301, end: 20100301
  2. CANDESARTAN CILEXETIL [Concomitant]
  3. ATELEC (CILNIDIPINE) [Concomitant]
  4. ASPIRIN [Concomitant]
  5. PERSANTINE [Concomitant]
  6. LANSOPRAZOLE [Concomitant]
  7. CRESTOR [Concomitant]
  8. BASEN (VOGLIBOSE) [Concomitant]
  9. AMARYL [Concomitant]

REACTIONS (10)
  - ANURIA [None]
  - GASTROINTESTINAL NECROSIS [None]
  - HAEMATEMESIS [None]
  - LOSS OF CONSCIOUSNESS [None]
  - NAUSEA [None]
  - NECROSIS ISCHAEMIC [None]
  - OXYGEN SATURATION DECREASED [None]
  - PANCREATIC DISORDER [None]
  - SHOCK [None]
  - VOMITING [None]
